FAERS Safety Report 6841317-0 (Version None)
Quarter: 2010Q3

REPORT INFORMATION
  Report Type: 
  Country: None (occurrence: None)
  Receive Date: 20100714
  Receipt Date: 20070830
  Transmission Date: 20110219
  Serious: No
  Sender: FDA-Public Use
  Company Number: US-PFIZER INC-2007054179

PATIENT
  Sex: Female
  Weight: 116.1 kg

DRUGS (2)
  1. CHANTIX [Suspect]
     Indication: SMOKING CESSATION THERAPY
     Dates: start: 20070612, end: 20070629
  2. ANTIBIOTICS [Concomitant]
     Indication: FURUNCLE
     Dates: start: 20070601

REACTIONS (6)
  - ABNORMAL DREAMS [None]
  - ASTHENIA [None]
  - DIZZINESS [None]
  - EUPHORIC MOOD [None]
  - NAUSEA [None]
  - NERVOUSNESS [None]
